FAERS Safety Report 17237931 (Version 1)
Quarter: 2020Q1

REPORT INFORMATION
  Report Type: Report from Study
  Country: GB (occurrence: GB)
  Receive Date: 20200106
  Receipt Date: 20200106
  Transmission Date: 20200409
  Serious: Yes (Hospitalization)
  Sender: FDA-Public Use
  Company Number: GB-PACIRA-201900224

PATIENT
  Age: 76 Year

DRUGS (10)
  1. BUPIVACAINE HYDROCHLORIDE. [Suspect]
     Active Substance: BUPIVACAINE HYDROCHLORIDE
     Indication: POSTOPERATIVE ANALGESIA
     Route: 052
     Dates: start: 20190514, end: 20190514
  2. PARACETAMOL [Concomitant]
     Active Substance: ACETAMINOPHEN
     Indication: ANALGESIC THERAPY
     Dosage: 1 G QDS
     Route: 048
  3. CODEINE [Concomitant]
     Active Substance: CODEINE
     Indication: ANALGESIC THERAPY
     Dosage: 30 MG QDS
     Route: 048
  4. VESICARE [Concomitant]
     Active Substance: SOLIFENACIN SUCCINATE
     Indication: HYPERTONIC BLADDER
     Route: 048
  5. MORPHINE SULPHATE [Concomitant]
     Active Substance: MORPHINE SULFATE
     Indication: ANALGESIC THERAPY
     Route: 048
  6. EXPAREL [Suspect]
     Active Substance: BUPIVACAINE
     Indication: POSTOPERATIVE ANALGESIA
     Dosage: N/A PATIENT RECEIVED CONTROL DRUG ONLY
  7. SIMVASTATIN. [Concomitant]
     Active Substance: SIMVASTATIN
     Indication: HYPERCHOLESTEROLAEMIA
     Route: 048
  8. FELODIPINE. [Concomitant]
     Active Substance: FELODIPINE
     Indication: HYPERTENSION
     Route: 048
  9. LACTULOSE. [Concomitant]
     Active Substance: LACTULOSE
     Indication: CONSTIPATION
     Dosage: 15 ML BD
     Route: 048
  10. BUPRENORPHINE. [Concomitant]
     Active Substance: BUPRENORPHINE
     Indication: ANALGESIC THERAPY
     Dosage: 20 MCG/HR EVERY TUESDAY WEEKLY
     Route: 061

REACTIONS (1)
  - Anaemia postoperative [Recovered/Resolved]

NARRATIVE: CASE EVENT DATE: 20190520
